FAERS Safety Report 8843860 (Version 1)
Quarter: 2012Q4

REPORT INFORMATION
  Report Type: 
  Country: US (occurrence: US)
  Receive Date: 20121016
  Receipt Date: 20121016
  Transmission Date: 20130627
  Serious: Yes (Other)
  Sender: FDA-Public Use
  Company Number: US-PFIZER INC-2012255048

PATIENT
  Age: 59 Year
  Sex: Female
  Weight: 63.49 kg

DRUGS (8)
  1. NEURONTIN [Suspect]
     Indication: BACK PAIN
     Dosage: 100 mg, daily
  2. NEURONTIN [Suspect]
     Dosage: 200 mg, daily
  3. NEURONTIN [Suspect]
     Dosage: 300 mg, daily
  4. NEURONTIN [Suspect]
     Dosage: 600 mg, daily
  5. NEURONTIN [Suspect]
     Dosage: UNK, daily
  6. LISINOPRIL [Concomitant]
     Indication: HYPERTENSION
     Dosage: 20 mg, daily
  7. SIMVASTATIN [Concomitant]
     Indication: BLOOD CHOLESTEROL INCREASED
     Dosage: 40 mg, daily
  8. TOPROL [Concomitant]
     Indication: CARDIAC DISORDER
     Dosage: 100 mg, daily

REACTIONS (2)
  - Myocardial infarction [Unknown]
  - Confusional state [Unknown]
